FAERS Safety Report 10676831 (Version 1)
Quarter: 2014Q4

REPORT INFORMATION
  Report Type: Spontaneous
  Country: CA (occurrence: CA)
  Receive Date: 20141226
  Receipt Date: 20141226
  Transmission Date: 20150529
  Serious: Yes (Life-Threatening)
  Sender: FDA-Public Use
  Company Number: CHPA2014CA016946

PATIENT

DRUGS (1)
  1. BUCKLEY^S UNKNOWN [Suspect]
     Active Substance: DEXTROMETHORPHAN
     Indication: PRODUCT USED FOR UNKNOWN INDICATION
     Dosage: 3 TSP, UNK
     Route: 065

REACTIONS (1)
  - Feeling abnormal [Unknown]
